FAERS Safety Report 8242173-9 (Version None)
Quarter: 2012Q1

REPORT INFORMATION
  Report Type: 
  Country: None (occurrence: None)
  Receive Date: 20120314
  Receipt Date: 20101203
  Transmission Date: 20120608
  Serious: No
  Sender: FDA-Public Use
  Company Number: PHHY2010US63666

PATIENT
  Age: 32 Year
  Sex: Female

DRUGS (1)
  1. FANAPT [Suspect]
     Indication: SCHIZOPHRENIA
     Dosage: 1 MG, BID, ORAL
     Route: 048
     Dates: start: 20100901, end: 20100903

REACTIONS (3)
  - ENURESIS [None]
  - DRY MOUTH [None]
  - SEDATION [None]
